FAERS Safety Report 6254687-1 (Version None)
Quarter: 2009Q3

REPORT INFORMATION
  Report Type: 
  Country: None (occurrence: None)
  Receive Date: 20090702
  Receipt Date: 20090622
  Transmission Date: 20100115
  Serious: Yes (Other)
  Sender: FDA-Public Use
  Company Number: US-PFIZER INC-2008058811

PATIENT
  Sex: Female
  Weight: 79.365 kg

DRUGS (9)
  1. CHANTIX [Suspect]
     Dosage: UNK
     Dates: start: 20080101, end: 20090201
  2. CYMBALTA [Concomitant]
     Indication: DEPRESSION
     Route: 048
  3. TEGRETOL [Concomitant]
     Route: 048
  4. ABILIFY [Concomitant]
     Route: 048
  5. FOSAMAX [Concomitant]
     Route: 048
  6. ETHINYL ESTRADIOL W/NORGESTREL [Concomitant]
     Route: 048
  7. LISINOPRIL [Concomitant]
  8. CRESTOR [Concomitant]
  9. RESTORIL [Concomitant]

REACTIONS (2)
  - CONFUSIONAL STATE [None]
  - DEPRESSION [None]
